FAERS Safety Report 6741056-0 (Version None)
Quarter: 2010Q2

REPORT INFORMATION
  Report Type: 
  Country: None (occurrence: None)
  Receive Date: 20100526
  Receipt Date: 20100514
  Transmission Date: 20101027
  Serious: No
  Sender: FDA-Public Use
  Company Number: US-JNJFOC-20100505783

PATIENT
  Sex: Male

DRUGS (3)
  1. CHILDREN'S MOTRIN [Suspect]
     Route: 048
  2. CHILDREN'S MOTRIN [Suspect]
     Indication: HEADACHE
     Route: 048
  3. ANTICONVULSANT THERAPY [Concomitant]
     Indication: CONVULSION

REACTIONS (1)
  - PRODUCT MEASURED POTENCY ISSUE [None]
